FAERS Safety Report 10167319 (Version 1)
Quarter: 2014Q2

REPORT INFORMATION
  Report Type: Spontaneous
  Country: US (occurrence: US)
  Receive Date: 20140512
  Receipt Date: 20140512
  Transmission Date: 20141212
  Serious: Yes (Hospitalization, Other)
  Sender: FDA-Public Use
  Company Number: US-PFIZER INC-2014127776

PATIENT
  Age: 80 Year
  Sex: Male

DRUGS (4)
  1. XANAX [Suspect]
     Dosage: UNK
  2. BUTRANS [Suspect]
     Dosage: 10 UG, UNK
  3. BUTRANS [Suspect]
     Dosage: 20 UG, UNK
  4. PERCOCET [Suspect]
     Dosage: UNK

REACTIONS (2)
  - Respiratory depression [Unknown]
  - Pain [Unknown]
